FAERS Safety Report 4941796-X (Version None)
Quarter: 2006Q1

REPORT INFORMATION
  Report Type: 
  Country: None (occurrence: None)
  Receive Date: 20060308
  Receipt Date: 20060222
  Transmission Date: 20060701
  Serious: Yes (Hospitalization)
  Sender: FDA-Public Use
  Company Number: US-2005-018436

PATIENT
  Age: 61 Year
  Sex: Female
  Weight: 58 kg

DRUGS (12)
  1. BETASERON [Suspect]
     Indication: RELAPSING-REMITTING MULTIPLE SCLEROSIS
     Dosage: 8 MIU, EVERY 2D, SUBCUTANEOUS
     Route: 058
     Dates: start: 20050502, end: 20050818
  2. EFFEXOR [Concomitant]
  3. PROVIGIL [Concomitant]
  4. FLONASE [Concomitant]
  5. ADVAIR DISKUS 100/50 [Concomitant]
  6. SINGULAIR [Concomitant]
  7. PRILOSEC [Concomitant]
  8. TRAZODONE HCL [Concomitant]
  9. DURAGESIC-100 [Concomitant]
  10. MULTIVITAMINS (PANTHENOL, RETINOL) [Concomitant]
  11. ASCORBIC ACID [Concomitant]
  12. CITRUCEL (METHYLCELLULOSE) [Concomitant]

REACTIONS (26)
  - AFFECT LABILITY [None]
  - ANXIETY [None]
  - ASTHENIA [None]
  - BLOOD CHOLESTEROL INCREASED [None]
  - CHILLS [None]
  - COLD SWEAT [None]
  - CONDITION AGGRAVATED [None]
  - DEPRESSION [None]
  - DISTURBANCE IN ATTENTION [None]
  - DRUG INTERACTION [None]
  - DYSPHONIA [None]
  - FATIGUE [None]
  - FEELING ABNORMAL [None]
  - HOT FLUSH [None]
  - INFECTION [None]
  - MALAISE [None]
  - MIDDLE INSOMNIA [None]
  - MOOD SWINGS [None]
  - MULTIPLE SCLEROSIS [None]
  - NIGHT SWEATS [None]
  - NUCLEAR MAGNETIC RESONANCE IMAGING BRAIN ABNORMAL [None]
  - PANIC REACTION [None]
  - SINUS DISORDER [None]
  - SLEEP DISORDER [None]
  - SOMNOLENCE [None]
  - WHITE BLOOD CELL COUNT DECREASED [None]
